FAERS Safety Report 6127993-9 (Version None)
Quarter: 2009Q1

REPORT INFORMATION
  Report Type: 
  Country: None (occurrence: None)
  Receive Date: 20090323
  Receipt Date: 20090318
  Transmission Date: 20090719
  Serious: Yes (Hospitalization)
  Sender: FDA-Public Use
  Company Number: JP-ASTRAZENECA-2008AP06836

PATIENT
  Age: 79 Year
  Sex: Male
  Weight: 58 kg

DRUGS (7)
  1. CASODEX [Suspect]
     Indication: PROSTATE CANCER
     Route: 048
     Dates: start: 20080115
  2. ASPIRIN [Concomitant]
     Indication: ANGINA PECTORIS
     Route: 048
     Dates: start: 20050331
  3. SIGMART [Concomitant]
     Indication: ANGINA PECTORIS
     Route: 048
     Dates: start: 20050331
  4. ALOSITOL [Concomitant]
     Indication: GOUT
     Route: 048
     Dates: start: 20050331
  5. KOLANTYL [Concomitant]
     Indication: GASTRITIS
     Route: 048
     Dates: start: 20050405
  6. ARTIST [Concomitant]
     Indication: ANGINA PECTORIS
     Route: 048
     Dates: start: 20060314
  7. MEVALOTIN [Concomitant]
     Indication: HYPERLIPIDAEMIA
     Route: 048
     Dates: start: 20060606

REACTIONS (1)
  - BUNDLE BRANCH BLOCK LEFT [None]
